FAERS Safety Report 4738705-5 (Version None)
Quarter: 2005Q3

REPORT INFORMATION
  Report Type: 
  Country: None (occurrence: None)
  Receive Date: 20050803
  Receipt Date: 20050722
  Transmission Date: 20060218
  Serious: Yes (Death)
  Sender: FDA-Public Use
  Company Number: 2005079479

PATIENT
  Age: 17 Month
  Sex: Male
  Weight: 15.1 kg

DRUGS (4)
  1. GENOTROPIN [Suspect]
     Indication: ILL-DEFINED DISORDER
     Dosage: 0.2 MG (0.2 MG, DAILY AT NIGHT, SUBCUTANEOUS
     Route: 058
     Dates: start: 20041011
  2. HYDROCORTISONE [Concomitant]
  3. DDAVP [Concomitant]
  4. ELTROXIN (LEVOTHYROXINE SODIUM) [Concomitant]

REACTIONS (1)
  - RESPIRATORY DISORDER [None]
